FAERS Safety Report 16083212 (Version 3)
Quarter: 2020Q1

REPORT INFORMATION
  Report Type: Report from Study
  Country: DE (occurrence: DE)
  Receive Date: 20190318
  Receipt Date: 20200305
  Transmission Date: 20200409
  Serious: Yes (Hospitalization)
  Sender: FDA-Public Use
  Company Number: DE-ROCHE-2279784

PATIENT
  Age: 46 Year
  Sex: Female
  Weight: 95 kg

DRUGS (9)
  1. DOLORMIN [IBUPROFEN] [Concomitant]
     Route: 065
  2. DEXAMETHASONE. [Concomitant]
     Active Substance: DEXAMETHASONE
     Route: 065
     Dates: start: 20181119, end: 20181119
  3. PARACETAMOL [Concomitant]
     Active Substance: ACETAMINOPHEN
     Route: 065
     Dates: start: 20181119
  4. PERTUZUMAB. [Suspect]
     Active Substance: PERTUZUMAB
     Indication: HER-2 POSITIVE BREAST CANCER
     Dosage: DATE OF LAST DOSE PRIOR TO AE: 11/DEC/2019?DATE OF MOST RECENT DOSE OF PERTUZUMAB PRIOR TO SYNCOPE O
     Route: 042
     Dates: start: 20181111, end: 20200102
  5. TRASTUZUMAB. [Suspect]
     Active Substance: TRASTUZUMAB
     Indication: HER-2 POSITIVE BREAST CANCER
     Dosage: DATE OF LAST DOSE PRIOR TO SAE: 11/DEC/2019?DATE OF MOST RECENT DOSE OF TRASTUZUMAB PRIOR TO SYNCOPE
     Route: 042
     Dates: start: 20181111, end: 20200102
  6. TAMOXIFEN [Suspect]
     Active Substance: TAMOXIFEN
     Indication: HER-2 POSITIVE BREAST CANCER
     Dosage: DATE OD LAST DOSE PRIOR TO AE: 25/DEC/2019?DATE OF MOST RECENT DOSE OF TAMOXIFEN PRIOR TO SYNCOPE ON
     Route: 048
     Dates: start: 20191113
  7. RANITIC [Concomitant]
     Active Substance: RANITIDINE HYDROCHLORIDE
     Route: 065
     Dates: start: 20181119, end: 20181119
  8. IBUPROFEN. [Concomitant]
     Active Substance: IBUPROFEN
     Route: 065
     Dates: start: 20181025
  9. TAVEGIL [CLEMASTINE] [Concomitant]
     Active Substance: CLEMASTINE
     Route: 065
     Dates: start: 20181119, end: 20181119

REACTIONS (2)
  - Syncope [Recovered/Resolved]
  - Syncope [Recovered/Resolved]

NARRATIVE: CASE EVENT DATE: 20191225
